FAERS Safety Report 10068811 (Version 2)
Quarter: 2014Q2

REPORT INFORMATION
  Report Type: Spontaneous
  Country: JP (occurrence: JP)
  Receive Date: 20140409
  Receipt Date: 20140409
  Transmission Date: 20141212
  Serious: Yes (Death)
  Sender: FDA-Public Use
  Company Number: PHHY2014JP028810

PATIENT
  Age: 77 Year
  Sex: Female
  Weight: 35 kg

DRUGS (3)
  1. CUBICIN [Suspect]
     Indication: STAPHYLOCOCCAL INFECTION
     Dosage: 240 MG, QD
     Route: 041
     Dates: start: 20140208
  2. VANCOMYCIN [Suspect]
     Indication: STAPHYLOCOCCAL INFECTION
     Dosage: 1 G, UNK
     Route: 041
     Dates: start: 20140203, end: 20140207
  3. MEROPEN [Suspect]
     Indication: PYREXIA
     Dosage: UNK
     Route: 041
     Dates: start: 20140203, end: 20140203

REACTIONS (2)
  - Cardiac failure [Fatal]
  - Drug ineffective [Unknown]
